FAERS Safety Report 11078217 (Version 2)
Quarter: 2015Q2

REPORT INFORMATION
  Report Type: Spontaneous
  Country: CO (occurrence: CO)
  Receive Date: 20150430
  Receipt Date: 20150505
  Transmission Date: 20150821
  Serious: No
  Sender: FDA-Public Use
  Company Number: CO-AMGEN-COLSP2015041506

PATIENT

DRUGS (1)
  1. NEULASTIM [Suspect]
     Active Substance: PEGFILGRASTIM
     Indication: PRODUCT USED FOR UNKNOWN INDICATION
     Dosage: UNK, AFTER CHEMO
     Route: 058

REACTIONS (5)
  - Headache [Unknown]
  - Somnolence [Unknown]
  - Arthralgia [Unknown]
  - Discomfort [Unknown]
  - Asthenia [Unknown]
